FAERS Safety Report 22034824 (Version 3)
Quarter: 2023Q2

REPORT INFORMATION
  Report Type: Spontaneous
  Country: HU (occurrence: HU)
  Receive Date: 20230224
  Receipt Date: 20230501
  Transmission Date: 20230721
  Serious: Yes (Other)
  Sender: FDA-Public Use
  Company Number: HU-ELI_LILLY_AND_COMPANY-HU202302007496

PATIENT
  Age: 40 Year
  Sex: Male

DRUGS (1)
  1. TALTZ [Suspect]
     Active Substance: IXEKIZUMAB
     Indication: Psoriasis
     Dosage: 80 MG, OTHER (EVERY 4 WEEKS)
     Route: 058
     Dates: start: 20220803

REACTIONS (2)
  - Adenocarcinoma gastric [Unknown]
  - Metastases to liver [Not Recovered/Not Resolved]

NARRATIVE: CASE EVENT DATE: 20221202
